FAERS Safety Report 16246720 (Version 1)
Quarter: 2019Q2

REPORT INFORMATION
  Report Type: Spontaneous
  Country: US (occurrence: US)
  Receive Date: 20190427
  Receipt Date: 20190427
  Transmission Date: 20190711
  Serious: Yes (Hospitalization)
  Sender: FDA-Public Use
  Company Number: US-MALLINCKRODT-T201903206

PATIENT
  Sex: Female
  Weight: 94 kg

DRUGS (1)
  1. HYDROCODONE/ACETAMINOPHEN [Suspect]
     Active Substance: ACETAMINOPHEN\HYDROCODONE
     Indication: BACK PAIN
     Dosage: 10/325 MG, UNK
     Route: 065
     Dates: start: 2018

REACTIONS (3)
  - Product physical issue [Unknown]
  - Therapeutic product effect incomplete [Unknown]
  - Hypertension [Unknown]
